FAERS Safety Report 6829835-2 (Version None)
Quarter: 2010Q3

REPORT INFORMATION
  Report Type: 
  Country: None (occurrence: None)
  Receive Date: 20100706
  Receipt Date: 20100621
  Transmission Date: 20110219
  Serious: Yes (Death)
  Sender: FDA-Public Use
  Company Number: AUR-APL-2010-01675

PATIENT
  Age: 82 Year
  Sex: Male
  Weight: 90.7 kg

DRUGS (3)
  1. METFORMIN [Suspect]
     Indication: DIABETES MELLITUS
  2. NEURONTIN [Suspect]
     Indication: DIABETIC NEUROPATHY
     Dosage: ORAL
     Route: 048
  3. VICODIN [Suspect]
     Indication: DIABETIC NEUROPATHY
     Dosage: ORAL
     Route: 048

REACTIONS (2)
  - LIVER DISORDER [None]
  - RENAL FAILURE [None]
